FAERS Safety Report 7314454-4 (Version None)
Quarter: 2011Q1

REPORT INFORMATION
  Report Type: 
  Country: None (occurrence: None)
  Receive Date: 20110225
  Receipt Date: 20100930
  Transmission Date: 20110831
  Serious: No
  Sender: FDA-Public Use
  Company Number: -MYLANLABS-2010S1015941

PATIENT
  Age: 16 Year
  Sex: Female
  Weight: 44.45 kg

DRUGS (1)
  1. AMNESTEEM [Suspect]
     Indication: ACNE
     Route: 048
     Dates: start: 20100823, end: 20100830

REACTIONS (4)
  - HEADACHE [None]
  - ASTHENIA [None]
  - ABDOMINAL PAIN UPPER [None]
  - DIZZINESS [None]
